FAERS Safety Report 8247011-6 (Version None)
Quarter: 2012Q1

REPORT INFORMATION
  Report Type: 
  Country: None (occurrence: None)
  Receive Date: 20120330
  Receipt Date: 20120330
  Transmission Date: 20120608
  Serious: Yes (Hospitalization)
  Sender: FDA-Public Use
  Company Number: None

PATIENT
  Sex: Female
  Weight: 18 kg

DRUGS (2)
  1. EXJADE [Suspect]
     Indication: TRANSFUSION
     Dosage: 625 MG
     Route: 048
     Dates: start: 20091207, end: 20120329
  2. EXJADE [Suspect]
     Indication: IRON OVERLOAD
     Dosage: 625 MG
     Route: 048
     Dates: start: 20091207, end: 20120329

REACTIONS (9)
  - HYPERTENSION [None]
  - POSTERIOR REVERSIBLE ENCEPHALOPATHY SYNDROME [None]
  - NEPHRITIS [None]
  - ABDOMINAL PAIN [None]
  - DIARRHOEA [None]
  - URINE ANALYSIS ABNORMAL [None]
  - ANAEMIA [None]
  - PYREXIA [None]
  - CONVULSION [None]
